FAERS Safety Report 13280615 (Version 2)
Quarter: 2017Q4

REPORT INFORMATION
  Report Type: Spontaneous
  Country: JP (occurrence: JP)
  Receive Date: 20170301
  Receipt Date: 20171020
  Transmission Date: 20180320
  Serious: Yes (Life-Threatening, Hospitalization)
  Sender: FDA-Public Use
  Company Number: JP-ACTELION-A-CH2017-150163

PATIENT
  Age: 70 Year
  Sex: Female

DRUGS (18)
  1. BAYASPIRIN [Concomitant]
     Active Substance: ASPIRIN
  2. LUPRAC [Concomitant]
     Active Substance: TORSEMIDE
  3. AMLODIPINE [Concomitant]
     Active Substance: AMLODIPINE BESYLATE
  4. MICAMLO [Concomitant]
     Active Substance: AMLODIPINE BESYLATE\TELMISARTAN
  5. PROCYLIN [Concomitant]
     Active Substance: BERAPROST SODIUM
  6. SAMSCA [Concomitant]
     Active Substance: TOLVAPTAN
  7. HUMALOG [Concomitant]
     Active Substance: INSULIN LISPRO
  8. REVATIO [Concomitant]
     Active Substance: SILDENAFIL CITRATE
  9. OXYGEN. [Concomitant]
     Active Substance: OXYGEN
  10. OPSUMIT [Suspect]
     Active Substance: MACITENTAN
     Indication: PULMONARY ARTERIAL HYPERTENSION
     Dosage: 10 MG, OD
     Route: 048
     Dates: start: 20170207, end: 20170218
  11. TRACLEER [Suspect]
     Active Substance: BOSENTAN
     Indication: PULMONARY ARTERIAL HYPERTENSION
     Route: 048
  12. ALDACTONE [Concomitant]
     Active Substance: SPIRONOLACTONE
  13. NESP [Concomitant]
     Active Substance: DARBEPOETIN ALFA
  14. REBAMIPIDE [Concomitant]
     Active Substance: REBAMIPIDE
  15. EPALRESTAT [Concomitant]
     Active Substance: EPALRESTAT
  16. AZOSEMIDE [Concomitant]
     Active Substance: AZOSEMIDE
  17. LASIX [Concomitant]
     Active Substance: FUROSEMIDE
  18. CALBLOCK [Concomitant]
     Active Substance: AZELNIDIPINE

REACTIONS (4)
  - Cardiac failure [Recovering/Resolving]
  - Pulmonary congestion [Recovering/Resolving]
  - Pneumonia [Unknown]
  - Platelet count decreased [Unknown]

NARRATIVE: CASE EVENT DATE: 20170208
